FAERS Safety Report 21150890 (Version 2)
Quarter: 2023Q1

REPORT INFORMATION
  Report Type: Spontaneous
  Country: JP (occurrence: JP)
  Receive Date: 20220729
  Receipt Date: 20230224
  Transmission Date: 20230417
  Serious: Yes (Death, Life-Threatening, Other)
  Sender: FDA-Public Use
  Company Number: JP-JAZZ-2022-JP-025009

PATIENT
  Age: 62 Year
  Sex: Female
  Weight: 52.6 kg

DRUGS (2)
  1. DEFITELIO [Suspect]
     Active Substance: DEFIBROTIDE SODIUM
     Indication: Venoocclusive liver disease
     Dosage: 25 MG/KG
     Route: 042
     Dates: start: 20220426, end: 20220505
  2. CARPERITIDE [Suspect]
     Active Substance: CARPERITIDE
     Indication: Product used for unknown indication
     Dosage: UNK

REACTIONS (2)
  - Venoocclusive liver disease [Fatal]
  - Hypotension [Not Recovered/Not Resolved]

NARRATIVE: CASE EVENT DATE: 20220420
